FAERS Safety Report 10206895 (Version 1)
Quarter: 2014Q2

REPORT INFORMATION
  Report Type: Spontaneous
  Country: US (occurrence: None)
  Receive Date: 20140527
  Receipt Date: 20140527
  Transmission Date: 20141212
  Serious: Yes (Life-Threatening, Hospitalization)
  Sender: FDA-Public Use
  Company Number: 1224850-2014-0004

PATIENT
  Age: 51 Year
  Sex: Male

DRUGS (4)
  1. PHOSLO [Suspect]
     Indication: HYPERPHOSPHATAEMIA
  2. LIBERTY CYCLER [Concomitant]
  3. LIBERTY CASSETTE [Concomitant]
  4. FRESENIUS PERITONEAL DIALYSIS SOLUTION. [Concomitant]

REACTIONS (2)
  - Peritonitis bacterial [None]
  - Staphylococcal infection [None]
